FAERS Safety Report 6300446-0 (Version None)
Quarter: 2009Q3

REPORT INFORMATION
  Report Type: 
  Country: None (occurrence: None)
  Receive Date: 20090806
  Receipt Date: 20081013
  Transmission Date: 20100115
  Serious: No
  Sender: FDA-Public Use
  Company Number: US-ABBOTT-08P-163-0482289-00

PATIENT
  Sex: Female
  Weight: 54.48 kg

DRUGS (3)
  1. DEPAKOTE ER [Suspect]
     Indication: CONVULSION
     Route: 048
     Dates: end: 20081001
  2. DEPAKOTE ER [Suspect]
     Route: 048
     Dates: start: 20081001, end: 20081008
  3. DEPAKOTE ER [Suspect]
     Route: 048
     Dates: start: 20081008

REACTIONS (2)
  - BALANCE DISORDER [None]
  - NAUSEA [None]
